FAERS Safety Report 24272321 (Version 1)
Quarter: 2024Q3

REPORT INFORMATION
  Report Type: Report from Study
  Country: US (occurrence: US)
  Receive Date: 20240902
  Receipt Date: 20240902
  Transmission Date: 20241017
  Serious: Yes (Other)
  Sender: ABBVIE
  Company Number: US-ABBVIE-5900966

PATIENT
  Sex: Female

DRUGS (1)
  1. HUMIRA [Suspect]
     Active Substance: ADALIMUMAB
     Indication: Psoriasis
     Dosage: CITRATE FREE
     Route: 058
     Dates: start: 20040101

REACTIONS (4)
  - Coronary artery occlusion [Unknown]
  - Cholecystectomy [Unknown]
  - Psoriasis [Unknown]
  - Lice infestation [Unknown]

NARRATIVE: CASE EVENT DATE: 20190101
